FAERS Safety Report 8361279-7 (Version None)
Quarter: 2012Q2

REPORT INFORMATION
  Report Type: 
  Country: None (occurrence: None)
  Receive Date: 20120515
  Receipt Date: 20120504
  Transmission Date: 20120825
  Serious: Yes (Hospitalization, Other)
  Sender: FDA-Public Use
  Company Number: SE-MERCK-1204USA03518

PATIENT
  Age: 73 Year
  Sex: Male

DRUGS (4)
  1. VITAMINS (UNSPECIFIED) [Concomitant]
     Route: 065
  2. TRUSOPT [Suspect]
     Indication: GLAUCOMA
     Dosage: 20 MG/ML
     Route: 047
     Dates: start: 19900101, end: 20110601
  3. FOLSYRE [Concomitant]
     Route: 065
  4. XALATAN [Concomitant]
     Route: 065

REACTIONS (7)
  - NEPHRITIS [None]
  - FATIGUE [None]
  - HYPERSENSITIVITY [None]
  - DYSPNOEA [None]
  - NEPHROLITHIASIS [None]
  - CARDIOVASCULAR DISORDER [None]
  - DIZZINESS [None]
